FAERS Safety Report 8782800 (Version 1)
Quarter: 2012Q4

REPORT INFORMATION
  Report Type: 
  Country: MX (occurrence: MX)
  Receive Date: 20120913
  Receipt Date: 20120913
  Transmission Date: 20130627
  Serious: Yes (Other)
  Sender: FDA-Public Use
  Company Number: MX-GLAXOSMITHKLINE-A0992686A

PATIENT
  Sex: Male

DRUGS (2)
  1. AROPAX [Suspect]
     Indication: ANXIETY
     Dosage: 20MG At night
     Route: 048
     Dates: start: 201204
  2. INDOMETHACIN [Concomitant]

REACTIONS (4)
  - Dysgraphia [Not Recovered/Not Resolved]
  - Tremor [Not Recovered/Not Resolved]
  - Somnolence [Not Recovered/Not Resolved]
  - Anxiety [Not Recovered/Not Resolved]
